FAERS Safety Report 12864758 (Version 1)
Quarter: 2016Q4

REPORT INFORMATION
  Report Type: Spontaneous
  Country: US (occurrence: US)
  Receive Date: 20161019
  Receipt Date: 20161019
  Transmission Date: 20170207
  Serious: Yes (Disabling)
  Sender: FDA-Public Use
  Company Number: None

PATIENT
  Age: 23 Year
  Sex: Female
  Weight: 91.8 kg

DRUGS (3)
  1. SOLODYN [Concomitant]
     Active Substance: MINOCYCLINE HYDROCHLORIDE
  2. IBUPROFEN. [Concomitant]
     Active Substance: IBUPROFEN
  3. NEXPLANON [Suspect]
     Active Substance: ETONOGESTREL
     Indication: CONTRACEPTION
     Dosage: ?          QUANTITY:1 IMPLANT;OTHER FREQUENCY:EVERY 4 YEARS;?
     Route: 058
     Dates: start: 20141022, end: 20160301

REACTIONS (4)
  - Sleep disorder [None]
  - Anxiety [None]
  - Heart rate increased [None]
  - Vaginal haemorrhage [None]

NARRATIVE: CASE EVENT DATE: 20160301
